FAERS Safety Report 18277738 (Version 1)
Quarter: 2020Q3

REPORT INFORMATION
  Report Type: Spontaneous
  Country: HR (occurrence: HR)
  Receive Date: 20200917
  Receipt Date: 20200917
  Transmission Date: 20201103
  Serious: Yes (Hospitalization, Other)
  Sender: FDA-Public Use
  Company Number: HR-MYLANLABS-2020M1078202

PATIENT
  Age: 14 Year
  Sex: Male

DRUGS (3)
  1. NAPROXEN. [Concomitant]
     Active Substance: NAPROXEN
     Indication: JUVENILE SPONDYLOARTHRITIS
     Dosage: UNK
     Route: 065
  2. ADALIMUMAB [Suspect]
     Active Substance: ADALIMUMAB
     Indication: JUVENILE SPONDYLOARTHRITIS
     Dosage: UNK
     Route: 065
  3. SULFASALAZINE DELAYED?RELEASE [Concomitant]
     Active Substance: SULFASALAZINE
     Indication: JUVENILE SPONDYLOARTHRITIS
     Dosage: UNK
     Route: 065

REACTIONS (3)
  - Central nervous system inflammation [Recovered/Resolved with Sequelae]
  - Condition aggravated [Unknown]
  - Myositis [Unknown]
